FAERS Safety Report 6965468-5 (Version None)
Quarter: 2010Q3

REPORT INFORMATION
  Report Type: 
  Country: None (occurrence: None)
  Receive Date: 20100903
  Receipt Date: 20100830
  Transmission Date: 20110219
  Serious: Yes (Hospitalization)
  Sender: FDA-Public Use
  Company Number: B0669623A

PATIENT
  Sex: Female
  Weight: 67 kg

DRUGS (5)
  1. LAPATINIB [Suspect]
     Indication: BREAST CANCER
     Dosage: 1000MG PER DAY
     Route: 048
     Dates: start: 20091228, end: 20100428
  2. PACLITAXEL [Suspect]
     Indication: BREAST CANCER
     Dosage: 80MGM2 WEEKLY
     Route: 042
     Dates: start: 20091228, end: 20100329
  3. TRASTUZUMAB [Suspect]
     Indication: BREAST CANCER
     Route: 042
     Dates: start: 20091228, end: 20100322
  4. RADIOTHERAPY [Suspect]
  5. DIAPREL [Concomitant]
     Route: 048
     Dates: start: 20100721

REACTIONS (1)
  - PNEUMONIA [None]
